FAERS Safety Report 6335843-0 (Version None)
Quarter: 2009Q3

REPORT INFORMATION
  Report Type: 
  Country: None (occurrence: None)
  Receive Date: 20090828
  Receipt Date: 20090814
  Transmission Date: 20100115
  Serious: Yes (Death, Hospitalization)
  Sender: FDA-Public Use
  Company Number: A-US2009-26557

PATIENT
  Age: 6 Year
  Sex: Female

DRUGS (2)
  1. TRACLEER [Suspect]
     Indication: PULMONARY HYPERTENSION
     Dosage: 62.5 MG, BID, ORAL; 31.25 MG, BID, ORAL
     Route: 048
     Dates: start: 20090601, end: 20090701
  2. TRACLEER [Suspect]
     Indication: PULMONARY HYPERTENSION
     Dosage: 62.5 MG, BID, ORAL; 31.25 MG, BID, ORAL
     Route: 048
     Dates: start: 20090701, end: 20090723

REACTIONS (3)
  - CARDIAC ARREST [None]
  - DISEASE PROGRESSION [None]
  - PULMONARY HYPERTENSION [None]
